FAERS Safety Report 23737394 (Version 2)
Quarter: 2024Q2

REPORT INFORMATION
  Report Type: Spontaneous
  Country: IR (occurrence: IR)
  Receive Date: 20240412
  Receipt Date: 20240423
  Transmission Date: 20240716
  Serious: Yes (Death, Other)
  Sender: FDA-Public Use
  Company Number: IR-SA-2024SA102040

PATIENT
  Age: 10 Month
  Sex: Male
  Weight: 7 kg

DRUGS (1)
  1. MYOZYME [Suspect]
     Active Substance: ALGLUCOSIDASE ALFA
     Indication: Glycogen storage disease type II
     Dosage: 20 MG/KG
     Dates: start: 202307, end: 20240310

REACTIONS (2)
  - Respiratory failure [Fatal]
  - Hypotonia [Fatal]

NARRATIVE: CASE EVENT DATE: 20240320
